FAERS Safety Report 18341953 (Version 1)
Quarter: 2020Q4

REPORT INFORMATION
  Report Type: Spontaneous
  Country: DE (occurrence: DE)
  Receive Date: 20201005
  Receipt Date: 20201005
  Transmission Date: 20210113
  Serious: Yes (Other)
  Sender: FDA-Public Use
  Company Number: DE-AMGEN-DEUSP2020156859

PATIENT
  Age: 78 Year
  Sex: Male

DRUGS (5)
  1. VINFLUNINE [Concomitant]
     Active Substance: VINFLUNINE
     Indication: TRANSITIONAL CELL CANCER OF THE RENAL PELVIS AND URETER
     Dosage: 550 MILLIGRAM, Q3WK
     Dates: start: 20181205, end: 20190410
  2. VINFLUNINE [Concomitant]
     Active Substance: VINFLUNINE
     Dosage: 400 MILLIGRAM
     Dates: start: 20190606, end: 20200902
  3. GRANISETRON [Concomitant]
     Active Substance: GRANISETRON
     Dosage: 1 MILLIGRAM
  4. NEULASTA [Suspect]
     Active Substance: PEGFILGRASTIM
     Indication: PROPHYLAXIS
     Dosage: 6 MILLIGRAM, AFTER CHEMO, (ALWAYS 2 DAYS AFTER CHEMOTHERAPY 1 INJECTION)
     Route: 065
     Dates: start: 20181205
  5. DEXAMETHASONE. [Concomitant]
     Active Substance: DEXAMETHASONE
     Dosage: 8 MILLIGRAM

REACTIONS (2)
  - Atrial fibrillation [Recovered/Resolved]
  - Syncope [Recovered/Resolved]

NARRATIVE: CASE EVENT DATE: 20190410
